FAERS Safety Report 12481428 (Version 1)
Quarter: 2016Q2

REPORT INFORMATION
  Report Type: Spontaneous
  Country: JP (occurrence: JP)
  Receive Date: 20160620
  Receipt Date: 20160620
  Transmission Date: 20160815
  Serious: Yes (Death)
  Sender: FDA-Public Use
  Company Number: JP-VALIDUS PHARMACEUTICALS LLC-JP-2016VAL002096

PATIENT

DRUGS (10)
  1. PARLODEL [Suspect]
     Active Substance: BROMOCRIPTINE MESYLATE
     Dosage: 5 MG, QD
     Route: 048
     Dates: start: 19901128, end: 19910515
  2. PARLODEL [Suspect]
     Active Substance: BROMOCRIPTINE MESYLATE
     Dosage: 15 MG, QD
     Route: 048
     Dates: start: 19940513, end: 19960330
  3. PARLODEL [Suspect]
     Active Substance: BROMOCRIPTINE MESYLATE
     Dosage: 10 MG, QD
     Route: 048
     Dates: start: 19911124, end: 19930916
  4. DOPS [Suspect]
     Active Substance: DROXIDOPA
     Indication: PARKINSON^S DISEASE
     Dosage: 2 DF, UNK
     Route: 048
     Dates: start: 19951221, end: 19960330
  5. EUNAL [Suspect]
     Active Substance: LISURIDE MALEATE
     Indication: PARKINSON^S DISEASE
     Dosage: 3 DF, UNK
     Route: 048
     Dates: start: 19940513, end: 19960330
  6. MENESIT [Suspect]
     Active Substance: CARBIDOPA\LEVODOPA
     Dosage: 4 DF, UNK
     Route: 048
     Dates: start: 19911114, end: 19960330
  7. PARLODEL [Suspect]
     Active Substance: BROMOCRIPTINE MESYLATE
     Indication: PARKINSON^S DISEASE
     Dosage: 2.5 MG, QD
     Route: 048
     Dates: start: 19901017, end: 19901127
  8. MENESIT [Suspect]
     Active Substance: CARBIDOPA\LEVODOPA
     Indication: PARKINSON^S DISEASE
     Dosage: 3 DF, UNK
     Route: 048
     Dates: start: 19870305, end: 19911113
  9. PARLODEL [Suspect]
     Active Substance: BROMOCRIPTINE MESYLATE
     Dosage: 12.5 MG, QD
     Route: 048
     Dates: start: 19930917, end: 19940512
  10. PARLODEL [Suspect]
     Active Substance: BROMOCRIPTINE MESYLATE
     Dosage: 7.5 MG, QD
     Route: 048
     Dates: start: 19910516, end: 19911113

REACTIONS (7)
  - Sudden death [Fatal]
  - Cardiac failure acute [None]
  - Blood pressure abnormal [None]
  - Blood uric acid decreased [None]
  - Basophil count increased [None]
  - Monocyte count increased [None]
  - Blood urea increased [None]
